FAERS Safety Report 5808871-9 (Version None)
Quarter: 2008Q3

REPORT INFORMATION
  Report Type: 
  Country: None (occurrence: None)
  Receive Date: 20080714
  Receipt Date: 20080704
  Transmission Date: 20090109
  Serious: Yes (Other)
  Sender: FDA-Public Use
  Company Number: US-BAYER-200812718BCC

PATIENT
  Age: 41 Year
  Sex: Male
  Weight: 96 kg

DRUGS (2)
  1. ALEVE [Suspect]
     Indication: ARTHRALGIA
     Dosage: AS USED: 440 MG  UNIT DOSE: 220 MG
     Route: 048
     Dates: start: 20080401
  2. TYLENOL PM [Concomitant]
     Indication: SLEEP DISORDER

REACTIONS (1)
  - BUNDLE BRANCH BLOCK [None]
